FAERS Safety Report 20652911 (Version 1)
Quarter: 2022Q1

REPORT INFORMATION
  Report Type: Spontaneous
  Country: US (occurrence: US)
  Receive Date: 20220330
  Receipt Date: 20220330
  Transmission Date: 20220423
  Serious: Yes (Other)
  Sender: FDA-Public Use
  Company Number: US-MYLANLABS-2022M1023444

PATIENT
  Sex: Male

DRUGS (6)
  1. CLONIDINE [Suspect]
     Active Substance: CLONIDINE
     Indication: Tourette^s disorder
     Dosage: UNK
     Route: 065
  2. GUANFACINE [Suspect]
     Active Substance: GUANFACINE
     Indication: Tourette^s disorder
     Dosage: UNK
     Route: 065
  3. TETRABENAZINE [Suspect]
     Active Substance: TETRABENAZINE
     Indication: Tourette^s disorder
     Dosage: UNK
     Route: 065
  4. VALPROIC ACID [Suspect]
     Active Substance: VALPROIC ACID
     Indication: Tourette^s disorder
     Dosage: UNK
     Route: 065
  5. HALOPERIDOL [Concomitant]
     Active Substance: HALOPERIDOL
     Indication: Tourette^s disorder
     Dosage: UNK
     Route: 065
  6. HALOPERIDOL [Concomitant]
     Active Substance: HALOPERIDOL
     Dosage: 10 MILLIGRAM, BID
     Route: 065

REACTIONS (2)
  - Treatment failure [Unknown]
  - Off label use [Unknown]
